FAERS Safety Report 15649819 (Version 1)
Quarter: 2018Q4

REPORT INFORMATION
  Report Type: Spontaneous
  Country: GB (occurrence: JP)
  Receive Date: 20181123
  Receipt Date: 20181123
  Transmission Date: 20190205
  Serious: Yes (Death, Other)
  Sender: FDA-Public Use
  Company Number: PHHY2018JP160270

PATIENT
  Age: 78 Year
  Sex: Male

DRUGS (12)
  1. METHOTREXATE. [Suspect]
     Active Substance: METHOTREXATE
     Indication: LUNG CANCER METASTATIC
  2. VINBLASTINE SULFATE. [Suspect]
     Active Substance: VINBLASTINE SULFATE
     Indication: LUNG CANCER METASTATIC
  3. CARBOPLATIN. [Suspect]
     Active Substance: CARBOPLATIN
     Indication: METASTATIC LYMPHOMA
  4. METHOTREXATE. [Suspect]
     Active Substance: METHOTREXATE
     Indication: METASTATIC LYMPHOMA
  5. VINBLASTINE SULFATE. [Suspect]
     Active Substance: VINBLASTINE SULFATE
     Indication: TRANSITIONAL CELL CARCINOMA
     Dosage: UNK UNK,QCY
     Route: 065
     Dates: start: 201410, end: 2015
  6. VINBLASTINE SULFATE. [Suspect]
     Active Substance: VINBLASTINE SULFATE
     Indication: METASTATIC LYMPHOMA
  7. EPIRUBICIN [Suspect]
     Active Substance: EPIRUBICIN
     Indication: TRANSITIONAL CELL CARCINOMA
     Dosage: UNK UNK,QCY
     Route: 065
     Dates: start: 201410, end: 2015
  8. EPIRUBICIN [Suspect]
     Active Substance: EPIRUBICIN
     Indication: LUNG CANCER METASTATIC
  9. CARBOPLATIN. [Suspect]
     Active Substance: CARBOPLATIN
     Indication: LUNG CANCER METASTATIC
  10. CARBOPLATIN. [Suspect]
     Active Substance: CARBOPLATIN
     Indication: TRANSITIONAL CELL CARCINOMA
     Dosage: UNK UNK,QCY
     Route: 065
     Dates: start: 201410, end: 2015
  11. METHOTREXATE. [Suspect]
     Active Substance: METHOTREXATE
     Indication: TRANSITIONAL CELL CARCINOMA
     Dosage: UNK UNK,QCY
     Route: 065
     Dates: start: 201410, end: 2015
  12. EPIRUBICIN [Suspect]
     Active Substance: EPIRUBICIN
     Indication: METASTATIC LYMPHOMA

REACTIONS (1)
  - Major depression [Unknown]
